FAERS Safety Report 4963416-0 (Version None)
Quarter: 2006Q1

REPORT INFORMATION
  Report Type: 
  Country: None (occurrence: None)
  Receive Date: 20060329
  Receipt Date: 20060318
  Transmission Date: 20060701
  Serious: Yes (Other)
  Sender: FDA-Public Use
  Company Number: 2006027535

PATIENT
  Age: 63 Year
  Sex: Female
  Weight: 79.3795 kg

DRUGS (13)
  1. PREDNISONE TAB [Suspect]
     Indication: IDIOPATHIC PULMONARY FIBROSIS
     Dosage: (11 MG)
  2. CELEBREX [Suspect]
     Indication: OSTEOARTHRITIS
     Dosage: 200 MG (200 MG, 1 IN 1D)
     Dates: start: 20050101
  3. VFEND [Suspect]
     Indication: ILL-DEFINED DISORDER
  4. ACTIMMUNE (INTERFERON GAMMA) [Concomitant]
  5. NEURONTIN [Concomitant]
  6. PRAVACHOL [Concomitant]
  7. FOSAMAX [Concomitant]
  8. PREVACID [Concomitant]
  9. ACETYLCYSTEINE [Concomitant]
  10. MURAN (AZATHIOPRINE) [Concomitant]
  11. VITAMIN B6 (VITAMIN B6) [Concomitant]
  12. CALCIUM CARBONATE (CALCIUM CARBONATE) [Concomitant]
  13. PREDNISONE TAB [Concomitant]

REACTIONS (7)
  - CATARACT [None]
  - GLAUCOMA [None]
  - LUNG DISORDER [None]
  - OSTEOARTHRITIS [None]
  - PAIN [None]
  - SLEEP DISORDER [None]
  - VISION BLURRED [None]
